FAERS Safety Report 9288457 (Version 3)
Quarter: 2014Q1

REPORT INFORMATION
  Report Type: Spontaneous
  Country: US (occurrence: US)
  Receive Date: 20130514
  Receipt Date: 20140207
  Transmission Date: 20141002
  Serious: Yes (Hospitalization, Other)
  Sender: FDA-Public Use
  Company Number: US-PFIZER INC-2011265599

PATIENT
  Age: 51 Year
  Sex: Female
  Weight: 58.05 kg

DRUGS (18)
  1. ENBREL [Suspect]
     Indication: RHEUMATOID ARTHRITIS
     Dosage: 50 MG, QWK
     Dates: start: 201109, end: 20130311
  2. XELJANZ [Suspect]
     Indication: RHEUMATOID ARTHRITIS
     Dosage: 5 MG, 2X/DAY
     Route: 048
     Dates: start: 20130326, end: 20130401
  3. METHOTREXATE [Concomitant]
     Indication: RHEUMATOID ARTHRITIS
     Dosage: 20 MG, QWK
     Route: 048
     Dates: start: 2008
  4. FOLIC ACID [Concomitant]
     Dosage: UNK
  5. VICODIN [Concomitant]
     Dosage: UNK
  6. HEPARIN [Concomitant]
     Dosage: 5000 IU, 2X/DAY
     Route: 058
  7. ACETAMINOPHEN [Concomitant]
     Dosage: 600 MG, EVERY SIX HOURS
     Route: 048
  8. ACETAMINOPHEN [Concomitant]
     Dosage: 650 MG, 1X/DAY (DAILY)
     Route: 048
  9. ZOLOFT [Concomitant]
     Indication: AFFECTIVE DISORDER
     Dosage: 100 MG, 1X/DAY (DAILY)
     Route: 048
     Dates: start: 200905
  10. CELEBREX [Concomitant]
     Indication: RHEUMATOID ARTHRITIS
     Dosage: 100 MG, 1X/DAY (DAILY)
     Route: 048
  11. CELEBREX [Concomitant]
     Dosage: 200 MG, 1X/DAY (DAILY)
  12. ZOFRAN [Concomitant]
     Dosage: 4 MG,  (Q6H, Q8H)
  13. DILAUDID [Concomitant]
     Dosage: 1 MG, UNK
     Route: 042
  14. SODIUM CHLORIDE [Concomitant]
     Dosage: 1000 ML, UNK
     Route: 042
  15. DECADRON [Concomitant]
     Dosage: 10 MG, UNK
  16. REGLAN [Concomitant]
     Dosage: 10 MG, UNK
     Route: 042
  17. TORADOL [Concomitant]
     Dosage: 30 MG, UNK
     Route: 042
  18. BENADRYL [Concomitant]
     Dosage: 25 MG, UNK
     Route: 042

REACTIONS (18)
  - Electrocardiogram abnormal [Unknown]
  - Electrocardiogram T wave inversion [Unknown]
  - Headache [Recovering/Resolving]
  - Influenza like illness [Unknown]
  - Rheumatoid arthritis [Unknown]
  - Tricuspid valve incompetence [Unknown]
  - Nausea [Unknown]
  - Vomiting [Unknown]
  - Hyperhidrosis [Unknown]
  - Myofascial pain syndrome [Unknown]
  - Photophobia [Unknown]
  - Paranasal sinus discomfort [Unknown]
  - Migraine [Unknown]
  - Deep vein thrombosis [Unknown]
  - Ischaemia [Unknown]
  - Decreased activity [Unknown]
  - Pyrexia [Not Recovered/Not Resolved]
  - Pain [Unknown]
